FAERS Safety Report 6467986-5 (Version None)
Quarter: 2009Q4

REPORT INFORMATION
  Report Type: 
  Country: None (occurrence: None)
  Receive Date: 20091202
  Receipt Date: 20091124
  Transmission Date: 20100525
  Serious: Yes (Other)
  Sender: FDA-Public Use
  Company Number: US-ABBOTT-09P-163-0501849-00

PATIENT
  Sex: Female
  Weight: 43.584 kg

DRUGS (5)
  1. HUMIRA [Suspect]
     Indication: SAPHO SYNDROME
     Dates: start: 20080601
  2. HUMIRA [Suspect]
     Indication: RHEUMATOID ARTHRITIS
  3. PLAQUENIL [Concomitant]
     Indication: DRUG USE FOR UNKNOWN INDICATION
  4. MEDROL [Concomitant]
     Indication: DRUG USE FOR UNKNOWN INDICATION
  5. FLORINEF [Concomitant]
     Indication: DRUG USE FOR UNKNOWN INDICATION

REACTIONS (12)
  - ADDISON'S DISEASE [None]
  - BLOOD ELECTROLYTES ABNORMAL [None]
  - BLOOD GLUCOSE DECREASED [None]
  - BLOOD PRESSURE DECREASED [None]
  - CHROMATURIA [None]
  - DEHYDRATION [None]
  - DIZZINESS [None]
  - DRUG DOSE OMISSION [None]
  - LETHARGY [None]
  - NAUSEA [None]
  - SOMNOLENCE [None]
  - VOMITING [None]
